FAERS Safety Report 7879885-2 (Version None)
Quarter: 2011Q4

REPORT INFORMATION
  Report Type: 
  Country: None (occurrence: None)
  Receive Date: 20111101
  Receipt Date: 20111021
  Transmission Date: 20120403
  Serious: Yes (Hospitalization)
  Sender: FDA-Public Use
  Company Number: US-MERCK-1106USA01962

PATIENT
  Age: 63 Year
  Sex: Female

DRUGS (3)
  1. CALCIUM (UNSPECIFIED) [Concomitant]
     Route: 065
  2. VITAMINS (UNSPECIFIED) [Concomitant]
     Route: 065
  3. FOSAMAX [Suspect]
     Indication: OSTEOPOROSIS
     Route: 048
     Dates: start: 20031201

REACTIONS (13)
  - LIVER DISORDER [None]
  - CONSTIPATION [None]
  - HYPERTENSION [None]
  - HYPERTHYROIDISM [None]
  - BLOOD PRESSURE INCREASED [None]
  - FEMUR FRACTURE [None]
  - ROAD TRAFFIC ACCIDENT [None]
  - RIB FRACTURE [None]
  - CHRONIC OBSTRUCTIVE PULMONARY DISEASE [None]
  - ANAEMIA POSTOPERATIVE [None]
  - THROMBOCYTOPENIA [None]
  - LIGAMENT SPRAIN [None]
  - HYPOTHYROIDISM [None]
